FAERS Safety Report 7792639-0 (Version None)
Quarter: 2011Q4

REPORT INFORMATION
  Report Type: 
  Country: None (occurrence: None)
  Receive Date: 20111003
  Receipt Date: 20110922
  Transmission Date: 20120403
  Serious: Yes (Other)
  Sender: FDA-Public Use
  Company Number: RU-ASTRAZENECA-2011SE57624

PATIENT
  Age: 723 Month
  Sex: Female

DRUGS (6)
  1. DILTIAZEM HCL [Concomitant]
  2. SYMBICORT [Suspect]
     Indication: ASTHMA
     Dosage: 4-6 PUFFS INTERMITTENT
     Route: 055
     Dates: start: 20100801, end: 20101201
  3. SYMBICORT [Suspect]
     Dosage: 4.5/160 TWO INHALATIONS TWO TIMES A DAY
     Route: 055
     Dates: start: 20100801
  4. FORMOTEROL FUMARATE [Concomitant]
  5. CETIRIZINE HCL [Concomitant]
  6. CILAZAPRIL [Concomitant]

REACTIONS (1)
  - BONE PAIN [None]
